FAERS Safety Report 22141956 (Version 1)
Quarter: 2023Q1

REPORT INFORMATION
  Report Type: Spontaneous
  Country: CN (occurrence: CN)
  Receive Date: 20230327
  Receipt Date: 20230327
  Transmission Date: 20230418
  Serious: Yes (Disabling, Other)
  Sender: FDA-Public Use
  Company Number: None

PATIENT
  Age: 65 Year
  Sex: Male
  Weight: 65 kg

DRUGS (4)
  1. MANNITOL [Suspect]
     Active Substance: MANNITOL
     Indication: Cerebrovascular accident
     Dosage: 250 ML, THREE TIMES DAILY AND DOSAGE FORM: INJECTION
     Route: 041
     Dates: start: 20230313, end: 20230317
  2. MANNITOL [Suspect]
     Active Substance: MANNITOL
     Indication: Brain oedema
     Dosage: 250 ML, TWICE DAILY AND DOSAGE FORM: INJECTION
     Route: 041
     Dates: start: 20230317, end: 20230321
  3. PIPERACILLIN AND TAZOBACTAM [Suspect]
     Active Substance: PIPERACILLIN SODIUM\TAZOBACTAM SODIUM
     Indication: Anti-infective therapy
     Dosage: 4.5 G, THREE TIMES DAILY
     Route: 041
     Dates: start: 20230313, end: 20230321
  4. PIPERACILLIN AND TAZOBACTAM [Suspect]
     Active Substance: PIPERACILLIN SODIUM\TAZOBACTAM SODIUM
     Indication: Cerebrovascular accident

REACTIONS (3)
  - Cerebrovascular accident [Unknown]
  - Condition aggravated [Unknown]
  - Renal impairment [Unknown]

NARRATIVE: CASE EVENT DATE: 20230315
